FAERS Safety Report 25206189 (Version 1)
Quarter: 2025Q2

REPORT INFORMATION
  Report Type: Spontaneous
  Country: JP (occurrence: JP)
  Receive Date: 20250417
  Receipt Date: 20250417
  Transmission Date: 20250716
  Serious: Yes (Life-Threatening, Hospitalization)
  Sender: EISAI
  Company Number: JP-Eisai-202416750_LEN_P_1

PATIENT
  Age: 66 Year
  Sex: Male
  Weight: 68 kg

DRUGS (3)
  1. LENVIMA [Suspect]
     Active Substance: LENVATINIB
     Indication: Thyroid cancer
     Route: 048
     Dates: start: 202001
  2. LENVIMA [Suspect]
     Active Substance: LENVATINIB
     Route: 048
  3. LENVIMA [Suspect]
     Active Substance: LENVATINIB
     Route: 048

REACTIONS (4)
  - Acute coronary syndrome [Recovered/Resolved]
  - Amylase increased [Unknown]
  - Gastroenteritis eosinophilic [Unknown]
  - Fatigue [Unknown]

NARRATIVE: CASE EVENT DATE: 20240601
